FAERS Safety Report 13307846 (Version 1)
Quarter: 2017Q1

REPORT INFORMATION
  Report Type: Spontaneous
  Country: US (occurrence: US)
  Receive Date: 20170308
  Receipt Date: 20170308
  Transmission Date: 20170428
  Serious: No
  Sender: FDA-Public Use
  Company Number: US-TEIKOKU PHARMA USA-TPU2017-00081

PATIENT
  Age: 63 Year
  Sex: Female

DRUGS (12)
  1. LOSARTAN + HCTZ [Concomitant]
     Indication: HYPERTENSION
     Dosage: 100MG/25MG 1 TABLET ONCE A DAY
  2. CETRIZINE [Concomitant]
     Active Substance: CETIRIZINE HYDROCHLORIDE
     Indication: HYPERSENSITIVITY
  3. ETODOLAC. [Concomitant]
     Active Substance: ETODOLAC
     Indication: INFLAMMATION
     Dates: start: 201612
  4. BUPROPION. [Concomitant]
     Active Substance: BUPROPION
     Indication: DEPRESSION
  5. GABAPENTIN. [Concomitant]
     Active Substance: GABAPENTIN
     Indication: NEURALGIA
  6. BUPROPION. [Concomitant]
     Active Substance: BUPROPION
     Indication: THINKING ABNORMAL
  7. LIDODERM [Suspect]
     Active Substance: LIDOCAINE
     Indication: BACK INJURY
     Route: 061
     Dates: start: 2012
  8. TYLENOL WITH CODEINE [Concomitant]
     Active Substance: ACETAMINOPHEN\CODEINE PHOSPHATE
     Indication: PAIN
  9. CARVEDILOL. [Concomitant]
     Active Substance: CARVEDILOL
     Indication: HYPERTENSION
  10. LIDODERM [Suspect]
     Active Substance: LIDOCAINE
     Dosage: APPLIED 1 EXPIRED PATCH
     Route: 061
     Dates: start: 20170202
  11. DIAZEPAM. [Concomitant]
     Active Substance: DIAZEPAM
     Indication: ANXIETY
  12. PROAIR INHALER [Concomitant]
     Indication: ASTHMA
     Dosage: RESCUE INHALER?USE IT PRETTY RARELY, AT MOST ONCE EVERY COUPLE WEEKS
     Dates: start: 2016

REACTIONS (3)
  - Liver function test abnormal [Unknown]
  - Inflammation [Unknown]
  - Expired product administered [Unknown]

NARRATIVE: CASE EVENT DATE: 20170202
